FAERS Safety Report 12623311 (Version 3)
Quarter: 2016Q3

REPORT INFORMATION
  Report Type: Spontaneous
  Country: CA (occurrence: CA)
  Receive Date: 20160804
  Receipt Date: 20160907
  Transmission Date: 20161109
  Serious: Yes (Hospitalization, Other)
  Sender: FDA-Public Use
  Company Number: CA-TEVA-681942USA

PATIENT
  Age: 39 Year
  Sex: Male

DRUGS (6)
  1. OLANZAPINE. [Interacting]
     Active Substance: OLANZAPINE
  2. BUPROPION. [Interacting]
     Active Substance: BUPROPION
  3. ESCITALOPRAM [Suspect]
     Active Substance: ESCITALOPRAM OXALATE
  4. PRIMIDONE. [Interacting]
     Active Substance: PRIMIDONE
  5. QUETIAPINE. [Interacting]
     Active Substance: QUETIAPINE
  6. PHENYTOIN. [Interacting]
     Active Substance: PHENYTOIN

REACTIONS (4)
  - Drug interaction [Recovered/Resolved]
  - Toxicity to various agents [Recovered/Resolved]
  - Overdose [Recovered/Resolved]
  - Serotonin syndrome [Recovered/Resolved]
